FAERS Safety Report 16297604 (Version 1)
Quarter: 2019Q2

REPORT INFORMATION
  Report Type: Spontaneous
  Country: FR (occurrence: FR)
  Receive Date: 20190510
  Receipt Date: 20190510
  Transmission Date: 20190711
  Serious: Yes (Other)
  Sender: FDA-Public Use
  Company Number: FR-TEVA-2019-FR-1047950

PATIENT
  Age: 49 Year
  Sex: Female
  Weight: 76 kg

DRUGS (15)
  1. RABEPRAZOLE SODIQUE [Suspect]
     Active Substance: RABEPRAZOLE SODIUM
     Indication: GASTROINTESTINAL DISORDER PROPHYLAXIS
     Dosage: 10 MILLIGRAM DAILY;
     Route: 048
     Dates: start: 2012
  2. HEMIGOXINE NATIVELLE 0,125 MG, COMPRIM? [Suspect]
     Active Substance: DIGOXIN
     Indication: CARDIAC FAILURE
     Dosage: 1 DOSAGE FORMS DAILY;
     Route: 048
     Dates: start: 2007
  3. METFORMINE [Suspect]
     Active Substance: METFORMIN HYDROCHLORIDE
     Indication: DIABETES MELLITUS
     Dosage: 1 GRAM DAILY;
     Route: 048
     Dates: start: 2012
  4. LETROZOLE SANDOZ 2.5 MG, COMPRIM? PELLICUL? [Suspect]
     Active Substance: LETROZOLE
     Indication: BREAST CANCER
     Route: 048
     Dates: start: 20181207
  5. SPIRONOLACTONE. [Suspect]
     Active Substance: SPIRONOLACTONE
     Indication: HYPERTENSION
     Dosage: 50 MILLIGRAM DAILY;
     Route: 048
     Dates: start: 2007
  6. PROCORALAN 5 MG, COMPRIM? PELLICUL? [Suspect]
     Active Substance: IVABRADINE HYDROCHLORIDE
     Indication: CARDIAC FAILURE
     Route: 048
     Dates: start: 2012
  7. FUROSEMIDE. [Suspect]
     Active Substance: FUROSEMIDE
     Indication: HYPERTENSION
     Dosage: 40 MILLIGRAM DAILY;
     Route: 048
     Dates: start: 2007
  8. DIAMICRON 60 MG, COMPRIM? S?CABLE ? LIB?RATION MODIFI?E [Suspect]
     Active Substance: GLICLAZIDE
     Indication: DIABETES MELLITUS
     Dosage: 2 DOSAGE FORMS DAILY;
     Route: 048
     Dates: start: 2016
  9. LEVOTHYROX 50 MICROGRAMMES, COMPRIM? S?CABLE [Suspect]
     Active Substance: LEVOTHYROXINE SODIUM
     Indication: HYPOTHYROIDISM
     Dosage: 1 DOSAGE FORMS DAILY;
     Route: 048
     Dates: start: 2007
  10. ENDOTELON (VITIS VINIFERA EXTRACT) [Suspect]
     Active Substance: HERBALS\VITIS VINIFERA LEAF
     Indication: PERIPHERAL VENOUS DISEASE
     Dosage: 2 DOSAGE FORMS DAILY;
     Route: 048
     Dates: start: 2012
  11. RAMIPRIL. [Suspect]
     Active Substance: RAMIPRIL
     Indication: HYPERTENSION
     Dosage: 2.5 MILLIGRAM DAILY;
     Route: 048
     Dates: start: 2007
  12. NEBIVOLOL. [Suspect]
     Active Substance: NEBIVOLOL
     Indication: HYPERTENSION
     Dosage: 5 MILLIGRAM DAILY;
     Route: 048
     Dates: start: 2007
  13. KARDEGIC [Suspect]
     Active Substance: ASPIRIN DL-LYSINE
     Indication: PROPHYLAXIS
     Dosage: 1 DOSAGE FORMS DAILY; IN SACHETS
     Route: 048
     Dates: start: 2007
  14. EUCREAS [Suspect]
     Active Substance: METFORMIN HYDROCHLORIDE\VILDAGLIPTIN
     Indication: DIABETES MELLITUS
     Dosage: 2 DOSAGE FORMS DAILY;
     Route: 048
     Dates: start: 2016
  15. ALLOPURINOL. [Suspect]
     Active Substance: ALLOPURINOL
     Indication: PRODUCT USED FOR UNKNOWN INDICATION
     Dosage: 300 MILLIGRAM DAILY;
     Route: 048
     Dates: start: 2007

REACTIONS (2)
  - Memory impairment [Not Recovered/Not Resolved]
  - Hot flush [Not Recovered/Not Resolved]

NARRATIVE: CASE EVENT DATE: 201901
